FAERS Safety Report 24199981 (Version 4)
Quarter: 2025Q1

REPORT INFORMATION
  Report Type: Spontaneous
  Country: US (occurrence: US)
  Receive Date: 20240812
  Receipt Date: 20250320
  Transmission Date: 20250409
  Serious: Yes (Other)
  Sender: PFIZER
  Company Number: US-PFIZER INC-202400214127

PATIENT
  Age: 38 Year
  Sex: Female

DRUGS (2)
  1. ELELYSO [Suspect]
     Active Substance: TALIGLUCERASE ALFA
     Dates: start: 20240710
  2. ELELYSO [Suspect]
     Active Substance: TALIGLUCERASE ALFA

REACTIONS (4)
  - Foot fracture [Unknown]
  - Weight increased [Unknown]
  - Incorrect dose administered [Unknown]
  - Product physical issue [Unknown]

NARRATIVE: CASE EVENT DATE: 20240101
